FAERS Safety Report 9448205 (Version 1)
Quarter: 2013Q3

REPORT INFORMATION
  Report Type: Spontaneous
  Country: PL (occurrence: PL)
  Receive Date: 20130808
  Receipt Date: 20130808
  Transmission Date: 20140515
  Serious: Yes (Hospitalization)
  Sender: FDA-Public Use
  Company Number: PHHY2013PL083261

PATIENT
  Age: 66 Year
  Sex: Male

DRUGS (13)
  1. SIMULECT [Suspect]
     Indication: RENAL TRANSPLANT
     Dosage: 20 MG, PRIOR TO RENAL TRANSPLANT
  2. SIMULECT [Suspect]
     Dosage: UNK SECOND DOSE ON DAY 4 AFTER TRANSPLANTATION
  3. CERTICAN [Suspect]
     Dosage: 0.75 MG TWICE
  4. CERTICAN [Suspect]
     Dosage: 1 MG TWICE
  5. CERTICAN [Suspect]
     Dosage: 0.75 MG TWICE
  6. CICLOSPORIN [Suspect]
     Dosage: UNK UKN, UNK
  7. TACROLIMUS [Concomitant]
     Indication: IMMUNOSUPPRESSION
     Dosage: 10 MG, 0.15 MG/KG/DAY
  8. MYCOPHENOLATE MOFETIL [Concomitant]
     Indication: IMMUNOSUPPRESSION
     Dosage: 1000 MG, TWICE
  9. MYCOPHENOLATE MOFETIL [Concomitant]
     Dosage: 250 MG TWICE
  10. PREDNISONE [Concomitant]
     Indication: IMMUNOSUPPRESSION
     Dosage: 35 MG, 0.5 MG/KG BODY WEIGHT / 24 HOUR
  11. PREDNISONE [Concomitant]
     Dosage: 5 MG, AT WEEK 10 AFTER TRANSPLANTATION
  12. PREDNISONE [Concomitant]
     Dosage: 20 MG PER DAY
  13. PREDNISONE [Concomitant]
     Dosage: 5 MG EVERY OTHER DAY

REACTIONS (8)
  - Complications of transplanted kidney [Unknown]
  - Ureteral necrosis [Unknown]
  - Kidney transplant rejection [Unknown]
  - Urinary tract infection enterococcal [Recovering/Resolving]
  - Urinary tract infection [Recovered/Resolved]
  - Klebsiella infection [Recovered/Resolved]
  - BK virus infection [Unknown]
  - Anaemia [Not Recovered/Not Resolved]
